FAERS Safety Report 6220740-1 (Version None)
Quarter: 2009Q2

REPORT INFORMATION
  Report Type: 
  Country: None (occurrence: None)
  Receive Date: 20090610
  Receipt Date: 20090603
  Transmission Date: 20091009
  Serious: Yes (Hospitalization)
  Sender: FDA-Public Use
  Company Number: PHHY2009BR22029

PATIENT
  Sex: Male

DRUGS (2)
  1. TRILEPTAL [Suspect]
     Dosage: 1 DF, TID
     Route: 048
  2. TRILEPTAL [Suspect]
     Dosage: 1 DF, BID

REACTIONS (1)
  - INCORRECT DOSE ADMINISTERED [None]
